FAERS Safety Report 6155731-2 (Version None)
Quarter: 2009Q2

REPORT INFORMATION
  Report Type: 
  Country: None (occurrence: None)
  Receive Date: 20090415
  Receipt Date: 20090408
  Transmission Date: 20091009
  Serious: Yes (Hospitalization)
  Sender: FDA-Public Use
  Company Number: B0569756A

PATIENT
  Sex: Female

DRUGS (8)
  1. MELPHALAN [Suspect]
     Indication: MULTIPLE MYELOMA
     Route: 042
     Dates: start: 20090128, end: 20090131
  2. THALIDOMIDE [Suspect]
     Indication: MULTIPLE MYELOMA
     Dosage: 100MG PER DAY
     Route: 048
     Dates: start: 20090128, end: 20090211
  3. PREDNISONE [Suspect]
     Indication: MULTIPLE MYELOMA
     Route: 042
     Dates: start: 20090128, end: 20090131
  4. VALACYCLOVIR HCL [Concomitant]
     Dosage: 500MG PER DAY
     Dates: start: 20090128
  5. OMEPRAZOLE [Concomitant]
     Dosage: 20MG PER DAY
     Dates: start: 20090128
  6. ACETYLSALICYLIC ACID SRT [Concomitant]
     Dosage: 100MG PER DAY
     Dates: start: 20090128
  7. SULFAMETHOXAZOLE AND TRIMETHOPRIM [Concomitant]
  8. TRIMETHOPRIM [Concomitant]

REACTIONS (3)
  - FEBRILE NEUTROPENIA [None]
  - HYPERSENSITIVITY [None]
  - THROMBOCYTOPENIA [None]
